FAERS Safety Report 5223579-9 (Version None)
Quarter: 2007Q1

REPORT INFORMATION
  Report Type: 
  Country: None (occurrence: None)
  Receive Date: 20070125
  Receipt Date: 20070116
  Transmission Date: 20070707
  Serious: Yes (Life-Threatening, Hospitalization)
  Sender: FDA-Public Use
  Company Number: 2007-00177

PATIENT
  Age: 28 Year
  Sex: Female
  Weight: 40 kg

DRUGS (4)
  1. TRELSTAR DEPOT [Suspect]
     Indication: IN VITRO FERTILISATION
     Dosage: SEE IMAGE
     Route: 058
     Dates: start: 20060923, end: 20061008
  2. TRELSTAR DEPOT [Suspect]
     Indication: IN VITRO FERTILISATION
     Dosage: SEE IMAGE
     Route: 058
     Dates: start: 20061009, end: 20061018
  3. PUREGON (FOLLITROPIN BETA) [Suspect]
     Indication: OVARIAN HYPERSTIMULATION SYNDROME
     Dosage: 150 IU, DAILY, PARENTERAL
     Route: 051
     Dates: start: 20061009, end: 20061018
  4. OVITRELLE () [Suspect]
     Indication: IN VITRO FERTILISATION
     Dosage: SINGLE, SUBCUTANEOUS
     Route: 058
     Dates: start: 20061019, end: 20061019

REACTIONS (17)
  - ASCITES [None]
  - CACHEXIA [None]
  - ESCHERICHIA INFECTION [None]
  - ILEOSTOMY [None]
  - MUSCLE CONTRACTURE [None]
  - NEPHROTIC SYNDROME [None]
  - OVARIAN HYPERSTIMULATION SYNDROME [None]
  - PALLOR [None]
  - PELVIC FLUID COLLECTION [None]
  - PELVIC HAEMATOMA [None]
  - PERITONEAL EFFUSION [None]
  - PERITONITIS [None]
  - PLEURAL EFFUSION [None]
  - POST PROCEDURAL COMPLICATION [None]
  - PROTEINURIA [None]
  - RESPIRATORY DISTRESS [None]
  - WEIGHT DECREASED [None]
